FAERS Safety Report 7322881-4 (Version None)
Quarter: 2011Q1

REPORT INFORMATION
  Report Type: 
  Country: None (occurrence: None)
  Receive Date: 20110301
  Receipt Date: 20110215
  Transmission Date: 20110831
  Serious: Yes (Life-Threatening, Hospitalization)
  Sender: FDA-Public Use
  Company Number: DE-MYLANLABS-2011S1003259

PATIENT
  Age: 42 Year
  Sex: Female
  Weight: 69 kg

DRUGS (1)
  1. PENTOXIFYLLINE [Suspect]
     Indication: SUICIDE ATTEMPT
     Dosage: ASSUMED DOSE FROM EMPTY PACKAGING: 50 X 400MG PENTOXIFYLLINE; TOTAL = 20G
     Route: 048

REACTIONS (6)
  - METABOLIC ACIDOSIS [None]
  - OLIGURIA [None]
  - INTENTIONAL OVERDOSE [None]
  - SUICIDE ATTEMPT [None]
  - COMA [None]
  - HYPOTENSION [None]
